FAERS Safety Report 12132354 (Version 2)
Quarter: 2016Q1

REPORT INFORMATION
  Report Type: Spontaneous
  Country: BR (occurrence: BR)
  Receive Date: 20160301
  Receipt Date: 20160308
  Transmission Date: 20160526
  Serious: Yes (Other)
  Sender: FDA-Public Use
  Company Number: BR-ELI_LILLY_AND_COMPANY-BR201602006955

PATIENT
  Age: 1 Year
  Sex: Female
  Weight: 8.72 kg

DRUGS (4)
  1. HUMALOG [Suspect]
     Active Substance: INSULIN LISPRO
     Indication: TYPE 1 DIABETES MELLITUS
     Dosage: UNK UNK, QID
     Route: 058
     Dates: start: 201512
  2. HUMULIN N [Suspect]
     Active Substance: INSULIN HUMAN
     Dosage: 3 IU, QID
     Route: 058
     Dates: start: 20151217
  3. HUMULIN N [Suspect]
     Active Substance: INSULIN HUMAN
     Indication: TYPE 1 DIABETES MELLITUS
     Dosage: 3 IU, EACH MORNING
     Route: 058
     Dates: start: 201512
  4. HUMULIN N [Suspect]
     Active Substance: INSULIN HUMAN
     Dosage: 3 IU, EACH EVENING
     Route: 058
     Dates: start: 20151217

REACTIONS (5)
  - Blood glucose increased [Recovered/Resolved]
  - Hypoglycaemic unconsciousness [Unknown]
  - Blood glucose fluctuation [Unknown]
  - Off label use [Unknown]
  - Drug ineffective [Recovered/Resolved]

NARRATIVE: CASE EVENT DATE: 20160215
